FAERS Safety Report 14315790 (Version 7)
Quarter: 2018Q2

REPORT INFORMATION
  Report Type: Spontaneous
  Country: FR (occurrence: FR)
  Receive Date: 20171221
  Receipt Date: 20180509
  Transmission Date: 20180711
  Serious: Yes (Hospitalization, Other)
  Sender: FDA-Public Use
  Company Number: PHHY2017FR189924

PATIENT
  Age: 57 Year
  Sex: Male
  Weight: 56 kg

DRUGS (89)
  1. PANOBINOSTAT [Suspect]
     Active Substance: PANOBINOSTAT
     Indication: PLASMA CELL MYELOMA
     Dosage: UNK
     Route: 065
  2. CARFILZOMIB [Suspect]
     Active Substance: CARFILZOMIB
     Dosage: 45 MG/M2, UNK
     Route: 065
  3. VELCADE [Suspect]
     Active Substance: BORTEZOMIB
     Indication: PLASMA CELL MYELOMA
  4. TOPALGIC [Concomitant]
     Dosage: 50 MG, X 4/DAY IF IN PAIN
     Route: 065
  5. AMLODIPINE [Concomitant]
     Active Substance: AMLODIPINE BESYLATE
     Indication: PRODUCT USED FOR UNKNOWN INDICATION
     Dosage: 5 MG, QD (1-0-0)
     Route: 065
  6. HYDROCORTISONE. [Concomitant]
     Active Substance: HYDROCORTISONE
     Dosage: 20 MG, QD
  7. TAVANIC [Concomitant]
     Active Substance: LEVOFLOXACIN
     Dosage: 1000 MG, UNK
     Route: 065
  8. CALCIDIA [Concomitant]
     Active Substance: CALCIUM CARBONATE
     Indication: PRODUCT USED FOR UNKNOWN INDICATION
     Dosage: UNK, QD (1-0-0)
     Route: 065
  9. CALCIDIA [Concomitant]
     Active Substance: CALCIUM CARBONATE
     Dosage: 1 DF, QD
     Route: 065
  10. EPOETIN ALFA [Concomitant]
     Active Substance: ERYTHROPOIETIN
     Dosage: 1 DF, WEEKLY
  11. EPOETIN ALFA [Concomitant]
     Active Substance: ERYTHROPOIETIN
     Dosage: UNK
     Route: 065
  12. FUROSEMIDE. [Concomitant]
     Active Substance: FUROSEMIDE
     Indication: PRODUCT USED FOR UNKNOWN INDICATION
     Dosage: 500 OT, 1/4-0-0
     Route: 065
  13. ZELITREX [Concomitant]
     Active Substance: VALACYCLOVIR HYDROCHLORIDE
     Dosage: 500 MG, UNK
     Route: 065
  14. SODIUM BICARBONATE. [Concomitant]
     Active Substance: SODIUM BICARBONATE
     Dosage: 1 G, X 4 PER DAY
  15. AMLOR [Concomitant]
     Active Substance: AMLODIPINE BESYLATE
     Indication: PRODUCT USED FOR UNKNOWN INDICATION
     Dosage: 5 MG, QD (IN THE MORNING)
     Route: 065
  16. LANSOPRAZOLE. [Concomitant]
     Active Substance: LANSOPRAZOLE
     Dosage: 15 MG, QD, (AT NIGHT)
  17. LOVENOX [Concomitant]
     Active Substance: ENOXAPARIN SODIUM
     Indication: PRODUCT USED FOR UNKNOWN INDICATION
     Dosage: 0.2 OT, QD
     Route: 065
  18. DEXAMETHASONE. [Suspect]
     Active Substance: DEXAMETHASONE
     Indication: PLASMA CELL MYELOMA
  19. CARFILZOMIB [Suspect]
     Active Substance: CARFILZOMIB
     Dosage: 56 MG/M2, UNK
     Route: 065
  20. HYDROCORTISONE. [Concomitant]
     Active Substance: HYDROCORTISONE
     Indication: PRODUCT USED FOR UNKNOWN INDICATION
     Dosage: 40 MG IN MORNING, 20 MG IN NOON
     Route: 065
  21. HYDROCORTISONE. [Concomitant]
     Active Substance: HYDROCORTISONE
     Dosage: UNK, BID
     Route: 065
     Dates: start: 2017
  22. HYDROCORTISONE. [Concomitant]
     Active Substance: HYDROCORTISONE
     Dosage: 10 MG, 2-1-0
  23. APIDRA [Concomitant]
     Active Substance: INSULIN GLULISINE
     Dosage: 30 IU, TID (IN THE MORNING, AT NOON AND NIGHT)
     Route: 058
  24. AMLOR [Concomitant]
     Active Substance: AMLODIPINE BESYLATE
     Dosage: 5 MG IN THE MORNING
  25. LOVENOX [Concomitant]
     Active Substance: ENOXAPARIN SODIUM
     Dosage: UNK, QD
     Route: 065
  26. DOLIPRANE [Concomitant]
     Active Substance: ACETAMINOPHEN
     Indication: PRODUCT USED FOR UNKNOWN INDICATION
     Dosage: 1 G, 3/DAY IF IN PAIN
  27. BICARBONATE (SODIUM BICARBONATE) [Concomitant]
     Active Substance: SODIUM BICARBONATE
     Dosage: 3 MG, UNK
     Route: 065
  28. BICARBONATE (SODIUM BICARBONATE) [Concomitant]
     Active Substance: SODIUM BICARBONATE
     Dosage: 3 MG, TID
  29. DEXAMETHASONE. [Suspect]
     Active Substance: DEXAMETHASONE
     Dosage: UNK
     Route: 065
  30. CARFILZOMIB [Suspect]
     Active Substance: CARFILZOMIB
     Indication: PLASMA CELL MYELOMA
     Dosage: 112 MG, ON DAYS 1, 2, 8, 9, 15 AND 16
     Route: 065
  31. CARFILZOMIB [Suspect]
     Active Substance: CARFILZOMIB
     Dosage: 112 MG/M2, UNK
     Route: 065
  32. HYDROCORTISONE. [Concomitant]
     Active Substance: HYDROCORTISONE
     Dosage: 25 MG, Q6H
     Route: 042
     Dates: start: 201707
  33. ASPIRIN. [Concomitant]
     Active Substance: ASPIRIN
     Dosage: 1 G, X 2/DAY FOR 7 DAYS
     Dates: start: 2017
  34. SODIUM BICARBONATE. [Concomitant]
     Active Substance: SODIUM BICARBONATE
     Dosage: 1 G, X 3/DAY
  35. AMLOR [Concomitant]
     Active Substance: AMLODIPINE BESYLATE
     Dosage: 10 MG, QD (IN THE MORNING)
     Route: 065
  36. BICARBONATE (SODIUM BICARBONATE) [Concomitant]
     Active Substance: SODIUM BICARBONATE
     Dosage: 3 OT, TID
     Route: 065
  37. SODIUM HYDROGEN CARBONATE [Concomitant]
     Active Substance: SODIUM BICARBONATE
     Indication: PRODUCT USED FOR UNKNOWN INDICATION
     Dosage: 1 G, TID
     Route: 065
  38. SODIUM HYDROGEN CARBONATE [Concomitant]
     Active Substance: SODIUM BICARBONATE
     Dosage: 4 G, QD
     Route: 065
  39. SODIUM HYDROGEN CARBONATE [Concomitant]
     Active Substance: SODIUM BICARBONATE
     Dosage: 3 MG, QD
  40. CARFILZOMIB [Suspect]
     Active Substance: CARFILZOMIB
     Indication: PLASMA CELL MYELOMA
  41. IXAZOMIB [Suspect]
     Active Substance: IXAZOMIB
     Dosage: 3 MG, UNK
     Route: 065
  42. IXAZOMIB [Suspect]
     Active Substance: IXAZOMIB
     Indication: PLASMA CELL MYELOMA
     Dosage: UNK
     Route: 065
  43. CEFTRIAXONE. [Concomitant]
     Active Substance: CEFTRIAXONE
     Indication: PRODUCT USED FOR UNKNOWN INDICATION
     Dosage: 2 G, QD
     Route: 042
     Dates: start: 20170822, end: 20170822
  44. LANTUS [Concomitant]
     Active Substance: INSULIN GLARGINE
     Indication: PRODUCT USED FOR UNKNOWN INDICATION
     Dosage: 40 IU, QD (AT NIGHT)
     Route: 058
  45. TAVANIC [Concomitant]
     Active Substance: LEVOFLOXACIN
     Dosage: 1 DAY OUT OF 2, ODD DAYS
     Route: 065
  46. VALACICLOVIR [Concomitant]
     Active Substance: VALACYCLOVIR HYDROCHLORIDE
     Dosage: 500 MG, UNK
     Route: 065
  47. SODIUM BICARBONATE. [Concomitant]
     Active Substance: SODIUM BICARBONATE
     Indication: PRODUCT USED FOR UNKNOWN INDICATION
     Dosage: 1 G, TID (1 G, X 3/DAY)
     Route: 065
  48. LANSOPRAZOLE. [Concomitant]
     Active Substance: LANSOPRAZOLE
     Indication: PRODUCT USED FOR UNKNOWN INDICATION
     Dosage: 15 MG, QD (AT NIGHT)
     Route: 065
  49. LOVENOX [Concomitant]
     Active Substance: ENOXAPARIN SODIUM
     Dosage: 0.2 X 1/DAY
  50. APROVEL [Concomitant]
     Active Substance: IRBESARTAN
     Dosage: 75 MG, UNK
     Route: 065
  51. SODIUM HYDROGEN CARBONATE [Concomitant]
     Active Substance: SODIUM BICARBONATE
     Dosage: 1 G, QID
     Route: 065
  52. CODEINE PHOSPHATE [Concomitant]
     Active Substance: CODEINE PHOSPHATE
     Indication: PRODUCT USED FOR UNKNOWN INDICATION
     Dosage: 2.5 MG, UNK
     Route: 065
  53. ENDOXAN [Suspect]
     Active Substance: CYCLOPHOSPHAMIDE
     Indication: PLASMA CELL MYELOMA
     Dosage: UNK
     Route: 065
  54. CARFILZOMIB [Suspect]
     Active Substance: CARFILZOMIB
     Dosage: 27 MG/M2, UNK
     Route: 065
  55. TAVANIC [Concomitant]
     Active Substance: LEVOFLOXACIN
     Dosage: 500 MG, IN THE MORNING AND AT NIGHT
     Route: 065
  56. TAVANIC [Concomitant]
     Active Substance: LEVOFLOXACIN
     Dosage: 1000 MG, (IN MORNING AND IN NIGHT)
     Route: 065
     Dates: start: 20170823
  57. ASPIRIN. [Concomitant]
     Active Substance: ASPIRIN
     Dosage: 1 G, X 1/DAY FOR 7 DAYS
     Route: 065
     Dates: start: 2017, end: 2017
  58. EPOETIN ALFA [Concomitant]
     Active Substance: ERYTHROPOIETIN
     Indication: PRODUCT USED FOR UNKNOWN INDICATION
     Dosage: 3000 OT, UNK
     Route: 065
  59. EPOETIN ALFA [Concomitant]
     Active Substance: ERYTHROPOIETIN
     Dosage: 30,000 1 X/WEEK SATURDAY
  60. FUROSEMIDE. [Concomitant]
     Active Substance: FUROSEMIDE
     Dosage: UNK
     Route: 065
  61. ZELITREX [Concomitant]
     Active Substance: VALACYCLOVIR HYDROCHLORIDE
     Dosage: UNK
     Route: 065
  62. AMLOR [Concomitant]
     Active Substance: AMLODIPINE BESYLATE
     Dosage: 10 MG, IN THE MORNING
  63. APROVEL [Concomitant]
     Active Substance: IRBESARTAN
     Indication: PRODUCT USED FOR UNKNOWN INDICATION
     Dosage: 75 MG, QD 1 TABLET IN THE MORNING
     Route: 065
  64. VELCADE [Suspect]
     Active Substance: BORTEZOMIB
     Indication: PLASMA CELL MYELOMA
  65. AMOXICILLIN. [Concomitant]
     Active Substance: AMOXICILLIN
     Indication: PRODUCT USED FOR UNKNOWN INDICATION
     Dosage: 500 MG, QD
     Route: 065
  66. TAVANIC [Concomitant]
     Active Substance: LEVOFLOXACIN
     Indication: ANTIBIOTIC PROPHYLAXIS
     Dosage: 250 MG, 1 DAY OUT OF 2, ODD DAYS
     Route: 065
  67. VALACICLOVIR [Concomitant]
     Active Substance: VALACYCLOVIR HYDROCHLORIDE
     Indication: PRODUCT USED FOR UNKNOWN INDICATION
     Dosage: 500 MG, IN THE MORNING OF EVEN DAYS
     Route: 065
  68. LANSOPRAZOLE. [Concomitant]
     Active Substance: LANSOPRAZOLE
     Dosage: 15 UNK, QD, (1-0-0)
  69. BICARBONATE (SODIUM BICARBONATE) [Concomitant]
     Active Substance: SODIUM BICARBONATE
     Dosage: 4 G, UNK
     Route: 065
  70. ENDOXAN [Suspect]
     Active Substance: CYCLOPHOSPHAMIDE
     Dosage: 250 MG (5 TABLETS) AT 12 PM AND 7 PM ON FRIDAY THEN 10 TABLETS
     Route: 065
  71. TOPALGIC [Concomitant]
     Indication: PAIN
     Dosage: 50 MG, X 4/DAY IF IN PAIN
  72. HYDROCORTISONE. [Concomitant]
     Active Substance: HYDROCORTISONE
     Dosage: 25 MG, UNK
     Route: 065
  73. HYDROCORTISONE. [Concomitant]
     Active Substance: HYDROCORTISONE
     Dosage: 10 MG, UNK
     Route: 065
  74. HYDROCORTISONE. [Concomitant]
     Active Substance: HYDROCORTISONE
     Dosage: UNK
     Route: 065
  75. ASPIRIN. [Concomitant]
     Active Substance: ASPIRIN
     Indication: PERICARDITIS
     Dosage: 1 G, TID
     Route: 065
     Dates: start: 2017, end: 20170120
  76. ZELITREX [Concomitant]
     Active Substance: VALACYCLOVIR HYDROCHLORIDE
     Indication: PRODUCT USED FOR UNKNOWN INDICATION
     Dosage: 500 MG, 1 DAY OUT OF 2 (EVEN DAYS)
     Route: 065
  77. APIDRA [Concomitant]
     Active Substance: INSULIN GLULISINE
     Indication: PRODUCT USED FOR UNKNOWN INDICATION
     Dosage: 30 IU, TID  (IN THE MORNING, AT NOON AND NIGHT)
     Route: 058
  78. TRIATEC (RAMIPRIL) [Concomitant]
     Active Substance: RAMIPRIL
     Indication: PRODUCT USED FOR UNKNOWN INDICATION
     Dosage: 1.25 MG, BID IN THE MORNING AND AT NIGHT
     Route: 065
  79. SODIUM HYDROGEN CARBONATE [Concomitant]
     Active Substance: SODIUM BICARBONATE
     Dosage: 3 G, TID
     Route: 065
  80. DEXAMETHASONE. [Suspect]
     Active Substance: DEXAMETHASONE
     Indication: PLASMA CELL MYELOMA
  81. PANOBINOSTAT [Suspect]
     Active Substance: PANOBINOSTAT
     Indication: PLASMA CELL MYELOMA
  82. VELCADE [Suspect]
     Active Substance: BORTEZOMIB
     Dosage: UNK
     Route: 065
  83. HYDROCORTISONE. [Concomitant]
     Active Substance: HYDROCORTISONE
     Dosage: 20 MG, UNK
     Route: 065
  84. HYDROCORTISONE. [Concomitant]
     Active Substance: HYDROCORTISONE
     Dosage: 10 MG, BID (10 MG, 2-1-0)
     Route: 065
  85. FUROSEMIDE. [Concomitant]
     Active Substance: FUROSEMIDE
     Dosage: 500 UNK, 1/4 -0-0
  86. TRIATEC (RAMIPRIL) [Concomitant]
     Active Substance: RAMIPRIL
     Dosage: 1.25 MG, IN THE MORNING AND AT NIGHT
  87. APROVEL [Concomitant]
     Active Substance: IRBESARTAN
     Dosage: 75 MG, 1 TABLET IN THE MORNING
  88. BICARBONATE (SODIUM BICARBONATE) [Concomitant]
     Active Substance: SODIUM BICARBONATE
     Indication: PRODUCT USED FOR UNKNOWN INDICATION
     Dosage: 1 MG, TID
     Route: 065
  89. IXAZOMIB [Suspect]
     Active Substance: IXAZOMIB
     Indication: PLASMA CELL MYELOMA

REACTIONS (16)
  - Pleural effusion [Recovering/Resolving]
  - Respiratory failure [Unknown]
  - Spinal pain [Unknown]
  - Pericarditis [Recovered/Resolved]
  - Dyspnoea exertional [Recovered/Resolved]
  - Morganella infection [Recovering/Resolving]
  - Klebsiella infection [Recovering/Resolving]
  - Cough [Recovered/Resolved]
  - Oedema peripheral [Not Recovered/Not Resolved]
  - Septic shock [Unknown]
  - Pain in extremity [Unknown]
  - Therapeutic response decreased [Unknown]
  - Arthralgia [Unknown]
  - Diarrhoea [Recovering/Resolving]
  - Escherichia infection [Unknown]
  - Acute kidney injury [Unknown]

NARRATIVE: CASE EVENT DATE: 2016
